FAERS Safety Report 6338798-8 (Version None)
Quarter: 2009Q3

REPORT INFORMATION
  Report Type: 
  Country: None (occurrence: None)
  Receive Date: 20090903
  Receipt Date: 20090831
  Transmission Date: 20100115
  Serious: Yes (Other)
  Sender: FDA-Public Use
  Company Number: US-JNJFOC-20090707197

PATIENT
  Sex: Female
  Weight: 45.36 kg

DRUGS (10)
  1. DURAGESIC-100 [Suspect]
     Indication: BACK PAIN
     Route: 062
  2. FUROSEMIDE [Concomitant]
     Indication: FLUID RETENTION
     Dosage: 1/2 OF 20 MG TABLET PER DAY
     Route: 048
  3. LORAZEPAM [Concomitant]
     Indication: ANXIETY
     Route: 048
  4. LYRICA [Concomitant]
     Indication: SCIATICA
     Dosage: 1/2 OF 20 MG TABLET PER DAY
     Route: 048
  5. ISOSORBIDE DINITRATE [Concomitant]
     Indication: CARDIAC DISORDER
     Dosage: HALF TABLET
     Route: 048
  6. CARDIZEM [Concomitant]
     Indication: CARDIAC DISORDER
     Dosage: HALF TABLET
     Route: 048
  7. PRILOSEC [Concomitant]
     Indication: GASTROOESOPHAGEAL REFLUX DISEASE
     Route: 048
  8. DILTIAZEM [Concomitant]
     Indication: CARDIAC DISORDER
     Route: 048
  9. NITROFURANTOIN [Concomitant]
     Indication: CYSTITIS
     Route: 048
  10. ISORDIL [Concomitant]
     Indication: CARDIAC DISORDER
     Dosage: 1/2 OF 20 MG TABLET PER DAY
     Route: 048

REACTIONS (10)
  - ABNORMAL BEHAVIOUR [None]
  - AGITATION [None]
  - BODY HEIGHT DECREASED [None]
  - DRUG INEFFECTIVE [None]
  - HYPERHIDROSIS [None]
  - INCORRECT DRUG ADMINISTRATION DURATION [None]
  - LIQUID PRODUCT PHYSICAL ISSUE [None]
  - PAIN [None]
  - PRODUCT QUALITY ISSUE [None]
  - WRONG TECHNIQUE IN DRUG USAGE PROCESS [None]
